FAERS Safety Report 4905330-2 (Version None)
Quarter: 2006Q1

REPORT INFORMATION
  Report Type: 
  Country: None (occurrence: None)
  Receive Date: 20060113
  Receipt Date: 20050711
  Transmission Date: 20060701
  Serious: Yes (Other)
  Sender: FDA-Public Use
  Company Number: HQWYE181513JUL05

PATIENT
  Age: 57 Year
  Sex: Female
  Weight: 43.13 kg

DRUGS (1)
  1. PREMPRO [Suspect]
     Indication: MENOPAUSAL SYMPTOMS
     Dosage: 625 MG/2.5 MG
     Dates: start: 20000501

REACTIONS (1)
  - BREAST CANCER [None]
